FAERS Safety Report 11381618 (Version 2)
Quarter: 2015Q4

REPORT INFORMATION
  Report Type: Spontaneous
  Country: JP (occurrence: JP)
  Receive Date: 20150814
  Receipt Date: 20151009
  Transmission Date: 20160304
  Serious: Yes (Death, Hospitalization)
  Sender: FDA-Public Use
  Company Number: JP-ASTRAZENECA-2015SE22768

PATIENT
  Age: 27035 Day
  Sex: Male
  Weight: 52 kg

DRUGS (9)
  1. BESOFTEN [Concomitant]
     Active Substance: SODIUM ALGINATE
     Indication: SKIN DISORDER
     Dosage: AS REQUIRED
     Route: 065
     Dates: start: 2014, end: 20141218
  2. LYRICA [Concomitant]
     Active Substance: PREGABALIN
     Indication: HYPOAESTHESIA
     Route: 048
     Dates: start: 20140709, end: 20141218
  3. IRESSA [Suspect]
     Active Substance: GEFITINIB
     Indication: LUNG ADENOCARCINOMA
     Route: 048
     Dates: start: 20140613, end: 20141218
  4. METHYCOOL [Concomitant]
     Active Substance: METHYLCOBALAMIN
     Indication: HYPOAESTHESIA
     Route: 048
     Dates: start: 20140709, end: 20141218
  5. KINDAVATE [Concomitant]
     Indication: SKIN DISORDER
     Dosage: AS REQUIRED
     Route: 065
     Dates: start: 2014, end: 20141218
  6. LANSOPRAZOLE. [Concomitant]
     Active Substance: LANSOPRAZOLE
     Route: 048
     Dates: start: 2014, end: 20141218
  7. SULBACILLIN [Concomitant]
     Active Substance: AMPICILLIN SODIUM\SULBACTAM SODIUM
     Indication: APPLICATION SITE ERYTHEMA
     Route: 065
     Dates: start: 20140601, end: 20140704
  8. BAYASPIRIN [Concomitant]
     Active Substance: ASPIRIN
     Route: 048
     Dates: start: 20140725
  9. GOSHAJINKIGAN [Concomitant]
     Active Substance: HERBALS
     Indication: HYPOAESTHESIA
     Route: 048
     Dates: start: 20141120, end: 20141218

REACTIONS (4)
  - Cerebral infarction [Unknown]
  - Rash [Unknown]
  - Interstitial lung disease [Fatal]
  - Diarrhoea [Unknown]

NARRATIVE: CASE EVENT DATE: 20140620
